FAERS Safety Report 9207544 (Version 2)
Quarter: 2014Q2

REPORT INFORMATION
  Report Type: Spontaneous
  Country: US (occurrence: US)
  Receive Date: 20130403
  Receipt Date: 20140407
  Transmission Date: 20141212
  Serious: Yes (Other)
  Sender: FDA-Public Use
  Company Number: US-BAYER-2013-039892

PATIENT
  Age: 31 Year
  Sex: Female

DRUGS (5)
  1. OCELLA [Suspect]
     Dosage: UNK
     Dates: start: 200903
  2. YASMIN [Suspect]
     Dosage: UNK
     Dates: start: 200903
  3. SPIRONOLACTONE [Concomitant]
     Dosage: 50 MG, UNK
     Dates: start: 20100316, end: 20110213
  4. VANIQA [Concomitant]
  5. BENICAR [Concomitant]

REACTIONS (4)
  - Cholelithiasis [None]
  - Injury [None]
  - Pain [None]
  - Pain [None]
